FAERS Safety Report 8432548-7 (Version None)
Quarter: 2012Q2

REPORT INFORMATION
  Report Type: 
  Country: None (occurrence: None)
  Receive Date: 20120607
  Receipt Date: 20120522
  Transmission Date: 20120825
  Serious: Yes (Other)
  Sender: FDA-Public Use
  Company Number: MPS1-1000699

PATIENT

DRUGS (1)
  1. ALDURAZYME [Suspect]
     Indication: OCCUPATIONAL EXPOSURE TO DRUG
     Dates: start: 20120517, end: 20120517

REACTIONS (3)
  - OCCUPATIONAL EXPOSURE TO DRUG [None]
  - LIP SWELLING [None]
  - HYPOAESTHESIA ORAL [None]
